FAERS Safety Report 10442268 (Version 1)
Quarter: 2014Q2

REPORT INFORMATION
  Report Type: Spontaneous
  Country: US (occurrence: None)
  Receive Date: 20140616
  Receipt Date: 20140616
  Transmission Date: 20141212
  Serious: Yes (Hospitalization, Other)
  Sender: FDA-Public Use
  Company Number: 2012-003326

PATIENT
  Sex: Female

DRUGS (48)
  1. ZOCOR (SIMVASTATIN) [Concomitant]
  2. CRESTOR (ROSUVASTATIN CALCIUM) [Concomitant]
  3. CHOLESTYRAMINE (COLESTYRAMINE) [Concomitant]
  4. METOCLOPRAMIDE (METOCLOPRAMIDE) [Concomitant]
  5. NEXIUM?/01479302/ (ESOMEPRAZOLE MAGNESIUM) [Concomitant]
  6. ACIPHEX (RABEPRAZOLE SODIUM) [Concomitant]
  7. PRILOSEC?/00661201/ (OMEPRAZOLE) [Concomitant]
  8. NAPROXEN (NAPROXEN) [Concomitant]
  9. MOBIC (MELOXICAM) [Concomitant]
  10. CYCLOBENZAPRINE (CYCLOBENZAPRINE) [Concomitant]
  11. ENDOCET (OXYCODONE HYDROCHLORIDE, PARACETAMOL) [Concomitant]
  12. HYDROCODONE W/APAP (HYDROCODONE, PARACETAMOL) [Concomitant]
  13. NEURONTIN (GABAPENTIN) [Concomitant]
  14. ALPRAZOLAM (ALPRAZOLAM) [Concomitant]
  15. CELEXA?/00582602/ (CITALOPRAM HYDROBROMIDE) [Concomitant]
  16. FLONASE (FLUTICASONE PROPIONATE) [Concomitant]
  17. ALAVERT (LORATADINE) [Concomitant]
  18. ALLEGRA (FEXOFENADINE HYDROCHLORIDE) [Concomitant]
  19. BENZONATATE (BENZONATATE) [Concomitant]
  20. PENICILLIN VK (PHENOXYMETHYLPENICILLIN POTASSIUM) [Concomitant]
  21. AMOXICILLIN (AMOXICILLIN) [Concomitant]
  22. CIPRO XR (CIPROFLOXACIN HYDROCHLORIDE) [Concomitant]
  23. ZITHROMAX (AZITHROMYCIN) [Concomitant]
  24. LIDOCAINE (LIDOCAINE) [Concomitant]
  25. CLOTRIMAZOLE (CLOTRIMAZOLE) [Concomitant]
  26. ACTONEL (RISEDRONATE SODIUM) TABLET, 35MG [Suspect]
     Indication: OSTEOPOROSIS
     Dosage: ONCE WEEKLY,
     Route: 048
     Dates: start: 200212, end: 2007
  27. ACTONEL (RISEDRONATE SODIUM) TABLET, 35MG [Suspect]
     Indication: OSTEOPENIA
     Dosage: ONCE WEEKLY,
     Route: 048
     Dates: start: 200212, end: 2007
  28. ACTONEL (RISEDRONATE SODIUM) TABLET, 35MG [Suspect]
     Indication: OSTEOPOROSIS PROPHYLAXIS
     Dosage: ONCE WEEKLY,
     Route: 048
     Dates: start: 200212, end: 2007
  29. FOSAMAX [Suspect]
     Indication: OSTEOPOROSIS
     Dosage: ONCE WEEKLY,
     Route: 048
     Dates: start: 200105, end: 200212
  30. FOSAMAX [Suspect]
     Indication: OSTEOPENIA
     Dosage: ONCE WEEKLY,
     Route: 048
     Dates: start: 200105, end: 200212
  31. FOSAMAX [Suspect]
     Indication: OSTEOPOROSIS PROPHYLAXIS
     Dosage: ONCE WEEKLY,
     Route: 048
     Dates: start: 200105, end: 200212
  32. FOSAMAX D [Suspect]
     Indication: OSTEOPOROSIS
     Dosage: 1/WEEK
     Route: 048
     Dates: start: 20100820
  33. BONIVA (IBANDRONATE SODIUM) [Suspect]
     Indication: OSTEOPOROSIS
     Route: 048
     Dates: start: 201010, end: 201206
  34. BONIVA (IBANDRONATE SODIUM) [Suspect]
     Indication: OSTEOPENIA
     Route: 048
     Dates: start: 201010, end: 201206
  35. PREDNISONE (PREDNISONE) [Concomitant]
  36. HYDROXYCHLOROQUINE (HYDROXYCHLOROQUINE) [Concomitant]
  37. COLCHICINE (COLCHICINE) [Concomitant]
  38. HYDROCHLOROTHIAZIDE (HYDROCHLOROTHIAZIDE) [Concomitant]
  39. TOPROL (METOPROLOL SUCCINATE) [Concomitant]
  40. METOLAZONE (METOLAZONE) (METOLAZONE) [Concomitant]
  41. SPIRONOLACTONE (SPIRONOLACTONE) [Concomitant]
  42. ZETIA (EZETIMIBE) [Concomitant]
  43. ISOSORBIDE MONONITRATE (ISOSORBIDE MONONITRATE) [Concomitant]
  44. NITROTAB (GLYCERYL TRINITRATE) [Concomitant]
  45. NITROQUICK (GLYCERYL TRINITRATE [Concomitant]
  46. FUROSEMIDE (FUROSEMIDE) [Concomitant]
  47. 1 POTASSIUM CHLORIDE (POTASSIUM CHLORIDE) [Concomitant]
  48. PLAVIX (CLOPIDOGREL BISULFATE) (CLOPIDOGREL BISULFATE) [Concomitant]

REACTIONS (5)
  - Femur fracture [None]
  - Bone disorder [None]
  - Stress fracture [None]
  - Low turnover osteopathy [None]
  - Pain [None]
